FAERS Safety Report 6965530-7 (Version None)
Quarter: 2010Q3

REPORT INFORMATION
  Report Type: 
  Country: None (occurrence: None)
  Receive Date: 20100903
  Receipt Date: 20100827
  Transmission Date: 20110219
  Serious: Yes (Hospitalization)
  Sender: FDA-Public Use
  Company Number: JP-JNJFOC-20100801304

PATIENT
  Sex: Male
  Weight: 51 kg

DRUGS (6)
  1. GOLIMUMAB [Suspect]
     Indication: RHEUMATOID ARTHRITIS
     Route: 058
  2. GOLIMUMAB [Suspect]
     Route: 058
  3. ASPIRIN [Concomitant]
     Indication: MYOCARDIAL ISCHAEMIA
     Route: 048
  4. SIGMART [Concomitant]
     Indication: MYOCARDIAL ISCHAEMIA
     Route: 048
  5. GASTER D [Concomitant]
     Indication: GASTROINTESTINAL DISORDER THERAPY
     Route: 048
  6. MOBIC [Concomitant]
     Indication: RHEUMATOID ARTHRITIS
     Route: 048

REACTIONS (1)
  - PROSTATITIS [None]
